FAERS Safety Report 4863712-1 (Version None)
Quarter: 2005Q4

REPORT INFORMATION
  Report Type: 
  Country: None (occurrence: None)
  Receive Date: 20051222
  Receipt Date: 20051107
  Transmission Date: 20060501
  Serious: No
  Sender: FDA-Public Use
  Company Number: US-GLAXOSMITHKLINE-A0581193A

PATIENT
  Age: 61 Year
  Sex: Female

DRUGS (6)
  1. FLOVENT [Suspect]
     Indication: ASTHMA
     Dosage: 2PUFF TWICE PER DAY
     Route: 055
     Dates: end: 20041001
  2. FLONASE [Concomitant]
  3. ALLEGRA [Concomitant]
  4. SINGULAIR [Concomitant]
  5. PRILOSEC [Concomitant]
  6. DIOVAN [Concomitant]

REACTIONS (8)
  - ASTHENIA [None]
  - DYSPEPSIA [None]
  - DYSPNOEA [None]
  - FATIGUE [None]
  - GASTRIC DISORDER [None]
  - GASTRITIS [None]
  - PRURITUS [None]
  - PYREXIA [None]
